FAERS Safety Report 6296678-0 (Version None)
Quarter: 2009Q3

REPORT INFORMATION
  Report Type: 
  Country: None (occurrence: None)
  Receive Date: 20090804
  Receipt Date: 20090725
  Transmission Date: 20100115
  Serious: Yes (Hospitalization)
  Sender: FDA-Public Use
  Company Number: GB-NOVOPROD-289831

PATIENT
  Sex: Female

DRUGS (4)
  1. NOVORAPID [Suspect]
     Indication: TYPE 1 DIABETES MELLITUS
     Dosage: 4 IU, TID
     Route: 058
  2. NOVORAPID [Suspect]
     Dosage: INCREASED 2 UNITS + ADDITIONAL 3 UNITS
     Dates: start: 20090725
  3. LEVEMIR [Suspect]
     Indication: TYPE 1 DIABETES MELLITUS
     Dosage: 20 IU, QD (4+16)
     Route: 058
  4. LEVEMIR [Suspect]

REACTIONS (5)
  - BLOOD GLUCOSE INCREASED [None]
  - BLOOD KETONE BODY [None]
  - DIABETIC KETOACIDOSIS [None]
  - EAR INFECTION [None]
  - LOWER RESPIRATORY TRACT INFECTION [None]
